FAERS Safety Report 6253972-7 (Version None)
Quarter: 2009Q3

REPORT INFORMATION
  Report Type: 
  Country: None (occurrence: None)
  Receive Date: 20090701
  Receipt Date: 20090701
  Transmission Date: 20100115
  Serious: Yes (Other)
  Sender: FDA-Public Use
  Company Number: None

PATIENT
  Sex: Female

DRUGS (1)
  1. ZICAM TABLETS [Suspect]
     Dates: start: 20090201, end: 20090201

REACTIONS (2)
  - ANOSMIA [None]
  - DYSGEUSIA [None]
